FAERS Safety Report 13535187 (Version 2)
Quarter: 2017Q3

REPORT INFORMATION
  Report Type: Spontaneous
  Country: US (occurrence: US)
  Receive Date: 20170511
  Receipt Date: 20170810
  Transmission Date: 20171127
  Serious: No
  Sender: FDA-Public Use
  Company Number: US-VIFOR (INTERNATIONAL) INC.-VIT-2017-02029

PATIENT
  Age: 29 Year
  Sex: Male

DRUGS (10)
  1. CLONIDINE. [Concomitant]
     Active Substance: CLONIDINE
  2. RENVELA [Concomitant]
     Active Substance: SEVELAMER CARBONATE
  3. VELTASSA [Suspect]
     Active Substance: PATIROMER
     Indication: HYPERKALAEMIA
     Route: 048
     Dates: start: 201702, end: 201702
  4. AMLODIPINE [Concomitant]
     Active Substance: AMLODIPINE BESYLATE
  5. NEPHRO-VITE [Concomitant]
  6. CARVEDILOL. [Concomitant]
     Active Substance: CARVEDILOL
  7. ABACAVIR. [Concomitant]
     Active Substance: ABACAVIR
  8. SUSTIVA [Concomitant]
     Active Substance: EFAVIRENZ
  9. LISINOPRIL. [Concomitant]
     Active Substance: LISINOPRIL
  10. LAMIVUDINE. [Concomitant]
     Active Substance: LAMIVUDINE

REACTIONS (5)
  - Flatulence [Unknown]
  - Swelling face [Recovered/Resolved]
  - Constipation [Unknown]
  - Peripheral swelling [Recovered/Resolved]
  - Diarrhoea [Unknown]

NARRATIVE: CASE EVENT DATE: 201702
